FAERS Safety Report 9900964 (Version 1)
Quarter: 2014Q1

REPORT INFORMATION
  Report Type: Spontaneous
  Country: US (occurrence: US)
  Receive Date: 20140217
  Receipt Date: 20140217
  Transmission Date: 20141002
  Serious: No
  Sender: FDA-Public Use
  Company Number: US-ABBVIE-13P-163-1155036-00

PATIENT
  Age: 70 Year
  Sex: Female
  Weight: 77.63 kg

DRUGS (6)
  1. SIMCOR 500/20 [Suspect]
     Indication: BLOOD CHOLESTEROL INCREASED
     Dosage: 500/20 MILLGRAMS
     Dates: start: 2007, end: 201309
  2. ATORVASTATIN [Suspect]
     Indication: BLOOD CHOLESTEROL INCREASED
     Dates: start: 201309
  3. ARACEPT [Concomitant]
     Indication: PRODUCT USED FOR UNKNOWN INDICATION
  4. HYDROCODONE [Concomitant]
     Indication: PRODUCT USED FOR UNKNOWN INDICATION
  5. DALIRESP [Concomitant]
     Indication: ASTHMA
  6. DALIRESP [Concomitant]
     Indication: CHRONIC OBSTRUCTIVE PULMONARY DISEASE

REACTIONS (5)
  - Muscle spasms [Not Recovered/Not Resolved]
  - Flushing [Recovered/Resolved]
  - Generalised erythema [Recovered/Resolved]
  - Burning sensation [Recovered/Resolved]
  - Morbid thoughts [Not Recovered/Not Resolved]
